FAERS Safety Report 18229929 (Version 1)
Quarter: 2020Q3

REPORT INFORMATION
  Report Type: Report from Study
  Country: None (occurrence: BR)
  Receive Date: 20200904
  Receipt Date: 20200904
  Transmission Date: 20201103
  Serious: Yes (Other)
  Sender: FDA-Public Use
  Company Number: BR-ABBVIE-19K-020-2909026-00

PATIENT
  Age: 37 Year
  Sex: Female
  Weight: 64 kg

DRUGS (2)
  1. HUMIRA [Suspect]
     Active Substance: ADALIMUMAB
     Indication: RHEUMATOID ARTHRITIS
     Route: 058
     Dates: start: 201807
  2. HUMIRA [Suspect]
     Active Substance: ADALIMUMAB
     Route: 058
     Dates: start: 2020

REACTIONS (4)
  - Maternal exposure during pregnancy [Unknown]
  - Premature separation of placenta [Recovered/Resolved]
  - Gestational diabetes [Recovered/Resolved]
  - Uterine atony [Recovered/Resolved]

NARRATIVE: CASE EVENT DATE: 20200313
